FAERS Safety Report 9543761 (Version 2)
Quarter: 2013Q4

REPORT INFORMATION
  Report Type: Spontaneous
  Country: US (occurrence: US)
  Receive Date: 20130923
  Receipt Date: 20131022
  Transmission Date: 20140711
  Serious: Yes (Other)
  Sender: FDA-Public Use
  Company Number: US-BAYER-2013-114535

PATIENT
  Age: 30 Year
  Sex: Female
  Weight: 63.49 kg

DRUGS (3)
  1. MIRENA [Suspect]
     Indication: CONTRACEPTION
     Dosage: 20 MCG/24HR, CONT
     Route: 015
     Dates: start: 20110818, end: 20130326
  2. MIRENA [Suspect]
     Indication: MENORRHAGIA
  3. LEVOTHYROXINE [Concomitant]
     Indication: THYROID DISORDER
     Dosage: 25 ?G, DAILY
     Dates: start: 2012

REACTIONS (7)
  - Uterine perforation [None]
  - Device difficult to use [None]
  - Injury [None]
  - Pelvic pain [None]
  - Emotional distress [None]
  - Device dislocation [None]
  - Ovarian cyst [None]
